FAERS Safety Report 4349973-6 (Version None)
Quarter: 2004Q2

REPORT INFORMATION
  Report Type: 
  Country: None (occurrence: None)
  Receive Date: 20040426
  Receipt Date: 20030529
  Transmission Date: 20050107
  Serious: Yes (Hospitalization)
  Sender: FDA-Public Use
  Company Number: 200313298US

PATIENT
  Age: 69 Year
  Sex: Male
  Weight: 91 kg

DRUGS (8)
  1. ALLEGRA [Suspect]
     Indication: HYPERSENSITIVITY
     Dosage: PO
     Route: 048
     Dates: start: 20030401, end: 20030404
  2. TERAZOSIN HCL [Concomitant]
  3. ATENOLOL [Concomitant]
  4. LISINOPRIL [Concomitant]
  5. VIOXX [Concomitant]
  6. PROSCAR [Concomitant]
  7. FLUOROURACIL (EFUDEX) [Concomitant]
  8. ASPIRIN [Concomitant]

REACTIONS (2)
  - ANGIONEUROTIC OEDEMA [None]
  - URTICARIA [None]
